FAERS Safety Report 14900459 (Version 1)
Quarter: 2018Q2

REPORT INFORMATION
  Report Type: Report from Study
  Country: ZA (occurrence: ZA)
  Receive Date: 20180516
  Receipt Date: 20180516
  Transmission Date: 20180711
  Serious: Yes (Other)
  Sender: FDA-Public Use
  Company Number: ZA-AUROBINDO-AUR-APL-2018-025512

PATIENT
  Age: 37 Year
  Sex: Female

DRUGS (2)
  1. EFAVIRENZ. [Suspect]
     Active Substance: EFAVIRENZ
     Indication: HIV INFECTION
  2. ISONIAZID. [Suspect]
     Active Substance: ISONIAZID
     Indication: HIV INFECTION

REACTIONS (4)
  - Gait disturbance [Recovered/Resolved]
  - Cerebellar ataxia [Recovered/Resolved]
  - Encephalopathy [Recovered/Resolved]
  - Confusional state [Recovered/Resolved]
